FAERS Safety Report 18981770 (Version 1)
Quarter: 2021Q1

REPORT INFORMATION
  Report Type: Spontaneous
  Country: US (occurrence: US)
  Receive Date: 20210308
  Receipt Date: 20210308
  Transmission Date: 20210420
  Serious: No
  Sender: FDA-Public Use
  Company Number: US-ASTRAZENECA-2021A057634

PATIENT
  Sex: Female

DRUGS (1)
  1. SYMBICORT [Suspect]
     Active Substance: BUDESONIDE\FORMOTEROL FUMARATE DIHYDRATE
     Dosage: 160 /4.5, 120 INHALATION CANISTER, UNKNOWN UNKNOWN
     Route: 055

REACTIONS (1)
  - Increased viscosity of upper respiratory secretion [Not Recovered/Not Resolved]
